FAERS Safety Report 6999701-0 (Version None)
Quarter: 2010Q3

REPORT INFORMATION
  Report Type: 
  Country: None (occurrence: None)
  Receive Date: 20100920
  Receipt Date: 20080410
  Transmission Date: 20110219
  Serious: Yes (Other)
  Sender: FDA-Public Use
  Company Number: US-ASTRAZENECA-2006UW26363

PATIENT
  Age: 43 Year
  Sex: Female
  Weight: 113.4 kg

DRUGS (21)
  1. SEROQUEL [Suspect]
     Indication: ANXIETY
     Dosage: 200-800 MG
     Route: 048
     Dates: start: 19990601, end: 20060401
  2. SEROQUEL [Suspect]
     Indication: BIPOLAR DISORDER
     Dosage: 200-800 MG
     Route: 048
     Dates: start: 19990601, end: 20060401
  3. SEROQUEL [Suspect]
     Indication: DEPRESSION
     Dosage: 200-800 MG
     Route: 048
     Dates: start: 19990601, end: 20060401
  4. SEROQUEL [Suspect]
     Route: 048
     Dates: start: 20020427
  5. SEROQUEL [Suspect]
     Route: 048
     Dates: start: 20020427
  6. SEROQUEL [Suspect]
     Route: 048
     Dates: start: 20020427
  7. BENADRYL [Concomitant]
     Route: 048
     Dates: start: 20020427
  8. PREVACID [Concomitant]
     Dosage: 30 MG - 60 MG
     Route: 048
     Dates: start: 20020427
  9. ATIVAN [Concomitant]
     Route: 048
     Dates: start: 20020427
  10. SINGULAIR [Concomitant]
     Dosage: 10 MG - 20 MG
     Dates: start: 20020427
  11. LISINOPRIL [Concomitant]
     Dosage: 10 MG - 40 MG
     Dates: start: 20020427
  12. HEPARIN [Concomitant]
     Dosage: 5000 UNITS
     Dates: start: 20020427
  13. PERCOCET [Concomitant]
     Dosage: 5/325 MG 5 TIMES PER DAY
     Dates: start: 20020427
  14. EFFEXOR XR [Concomitant]
     Dosage: 150 MG - 300 MG
     Dates: start: 20030709
  15. TOPAMAX [Concomitant]
     Dosage: 25 MG - 100 MG
     Dates: start: 20050427
  16. LASIX [Concomitant]
     Dosage: 40 MG - 80 MG
     Dates: start: 20050427
  17. COMPAZINE [Concomitant]
     Dates: start: 20060519
  18. REGLAN [Concomitant]
     Dates: start: 20050424
  19. PHENERGAN [Concomitant]
     Dates: start: 20060521
  20. PREDNISONE [Concomitant]
     Dates: start: 20060521
  21. ROBAXIN [Concomitant]
     Dates: start: 20050115

REACTIONS (3)
  - DIABETES MELLITUS [None]
  - DIABETIC COMA [None]
  - TYPE 2 DIABETES MELLITUS [None]
